FAERS Safety Report 7650070-2 (Version None)
Quarter: 2011Q3

REPORT INFORMATION
  Report Type: 
  Country: None (occurrence: None)
  Receive Date: 20110727
  Receipt Date: 20110707
  Transmission Date: 20111222
  Serious: Yes (Other)
  Sender: FDA-Public Use
  Company Number: 54973

PATIENT
  Age: 61 Year
  Sex: Female

DRUGS (4)
  1. HYLAND'S BIOPLASMA [Suspect]
     Indication: SWELLING
     Dosage: 2 TABS X 3X DAY X 1 DAY
  2. HYLAND'S ARNICA MONTANA 30X [Suspect]
     Indication: CONTUSION
     Dosage: 1-2 TABS X 4X DAY X 1 DY
  3. SULFUR BASED MEDICATION [Concomitant]
  4. PREDNISONE [Concomitant]

REACTIONS (1)
  - BLOOD URINE PRESENT [None]
